FAERS Safety Report 5680251-9 (Version None)
Quarter: 2008Q1

REPORT INFORMATION
  Report Type: 
  Country: None (occurrence: None)
  Receive Date: 20080326
  Receipt Date: 20080317
  Transmission Date: 20080703
  Serious: Yes (Hospitalization)
  Sender: FDA-Public Use
  Company Number: PHBS2008SE03448

PATIENT
  Age: 39 Year
  Sex: Female

DRUGS (4)
  1. TEGRETOL [Suspect]
     Indication: EPILEPSY
     Dosage: 100 MG, BID
     Route: 065
     Dates: start: 20080226, end: 20080304
  2. TEGRETOL [Suspect]
     Dosage: 150 MG MANE, 100 MG EVENING
     Route: 065
     Dates: start: 20080305
  3. TEGRETOL [Suspect]
     Dosage: 100 MG, QD
     Route: 065
  4. LEVOTHYROXINE SODIUM [Concomitant]

REACTIONS (6)
  - ACNE [None]
  - FEELING DRUNK [None]
  - LIVER FUNCTION TEST ABNORMAL [None]
  - METABOLIC DISORDER [None]
  - SPEECH DISORDER [None]
  - THYROID DISORDER [None]
